FAERS Safety Report 16321374 (Version 1)
Quarter: 2019Q2

REPORT INFORMATION
  Report Type: Spontaneous
  Country: US (occurrence: US)
  Receive Date: 20190516
  Receipt Date: 20190516
  Transmission Date: 20190711
  Serious: Yes (Death)
  Sender: FDA-Public Use
  Company Number: US-BAUSCH-BL-2019-007545

PATIENT
  Age: 18 Year
  Sex: Female

DRUGS (2)
  1. D-PENICILLAMINE [Suspect]
     Active Substance: PENICILLAMINE
     Indication: HEPATO-LENTICULAR DEGENERATION
     Dosage: 1-2 GRAMS PER DAY
     Route: 065
  2. D-PENICILLAMINE [Suspect]
     Active Substance: PENICILLAMINE
     Dosage: SINCE LAST 3 MONTHS
     Route: 065

REACTIONS (1)
  - Goodpasture^s syndrome [Fatal]
